FAERS Safety Report 22641822 (Version 1)
Quarter: 2023Q2

REPORT INFORMATION
  Report Type: Spontaneous
  Country: ES (occurrence: ES)
  Receive Date: 20230626
  Receipt Date: 20230626
  Transmission Date: 20230721
  Serious: Yes (Hospitalization)
  Sender: FDA-Public Use
  Company Number: None

PATIENT
  Age: 70 Year
  Sex: Male

DRUGS (8)
  1. OXALIPLATIN [Suspect]
     Active Substance: OXALIPLATIN
     Indication: Adenocarcinoma of colon
     Dosage: OXALIPLATINO (7351A)
     Route: 065
     Dates: start: 20230329, end: 20230329
  2. FLUOROURACIL [Suspect]
     Active Substance: FLUOROURACIL
     Indication: Adenocarcinoma of colon
     Dosage: FLUOROURACILO (272A)
     Route: 065
     Dates: start: 20230329, end: 20230331
  3. FLUOROURACIL [Suspect]
     Active Substance: FLUOROURACIL
     Dosage: FLUOROURACILO (272A)
     Route: 065
     Dates: start: 20230329, end: 20230329
  4. OMEPRAZOL TEVA-RIMAFAR [Concomitant]
     Indication: Product used for unknown indication
     Dosage: EFG, 28 CAPSULES
     Route: 065
     Dates: start: 20121015
  5. CALCIFEDIOL [Concomitant]
     Active Substance: CALCIFEDIOL
     Indication: Product used for unknown indication
     Dosage: 10 CAPSULES (PVC/PVDC-ALUMINUM BLISTER)
     Route: 065
     Dates: start: 20160516
  6. TELMISARTAN/HIDROCLOROTIAZIDA TEVAGEN [Concomitant]
     Indication: Product used for unknown indication
     Dosage: FORM STRENGTH : 40 MG/12.5 MG, EFG 28 TABLETS (AL/AL)
     Route: 065
     Dates: start: 20120604
  7. LEUCOVORIN [Concomitant]
     Active Substance: LEUCOVORIN
     Indication: Product used for unknown indication
     Dates: start: 20230329, end: 20230329
  8. CARBIDOPA\LEVODOPA [Concomitant]
     Active Substance: CARBIDOPA\LEVODOPA
     Indication: Product used for unknown indication
     Dosage: FORM STRENGTH : 25 MG/100 MG, 100 TABLETS
     Route: 065
     Dates: start: 20220708

REACTIONS (1)
  - Arteriospasm coronary [Recovered/Resolved]

NARRATIVE: CASE EVENT DATE: 20230331
